FAERS Safety Report 14659017 (Version 1)
Quarter: 2018Q1

REPORT INFORMATION
  Report Type: Spontaneous
  Country: TR (occurrence: TR)
  Receive Date: 20180320
  Receipt Date: 20180320
  Transmission Date: 20180509
  Serious: Yes (Other)
  Sender: FDA-Public Use
  Company Number: TR-MYLANLABS-2018M1018511

PATIENT
  Age: 22 Year
  Sex: Male

DRUGS (4)
  1. CIDOFOVIR. [Suspect]
     Active Substance: CIDOFOVIR
     Dosage: 5 MG, BIWEEKLY
     Route: 042
  2. CIDOFOVIR. [Suspect]
     Active Substance: CIDOFOVIR
     Indication: VIRAL HAEMORRHAGIC CYSTITIS
     Dosage: 5 MG/KG ONCE A WEEK FOR TWO WEEKS; THEN ONCE IN TWO WEEKS
     Route: 042
  3. PROBENECID. [Concomitant]
     Active Substance: PROBENECID
     Indication: PRODUCT USED FOR UNKNOWN INDICATION
     Dosage: 1.25 MG/M2
     Route: 048
  4. CYCLOSPORINE. [Concomitant]
     Active Substance: CYCLOSPORINE
     Indication: PRODUCT USED FOR UNKNOWN INDICATION
     Route: 065

REACTIONS (2)
  - Renal tubular necrosis [Unknown]
  - Metabolic acidosis [Unknown]
